FAERS Safety Report 9153435 (Version 3)
Quarter: 2014Q2

REPORT INFORMATION
  Report Type: Report from Study
  Country: IT (occurrence: IT)
  Receive Date: 20130311
  Receipt Date: 20140527
  Transmission Date: 20141212
  Serious: Yes (Death, Other)
  Sender: FDA-Public Use
  Company Number: IT-CELGENEUS-083-21880-11030389

PATIENT
  Sex: 0

DRUGS (2)
  1. REVLIMID [Suspect]
     Indication: MYELODYSPLASTIC SYNDROME
     Dosage: 10 MILLIGRAM
     Route: 048
  2. REVLIMID [Suspect]
     Dosage: 5 MILLIGRAM
     Route: 048

REACTIONS (16)
  - Lung infection [Fatal]
  - Cardiomyopathy [Fatal]
  - Myelodysplastic syndrome [Fatal]
  - Acute myeloid leukaemia [Fatal]
  - Sepsis [Fatal]
  - Neutropenia [Unknown]
  - Thrombocytopenia [Unknown]
  - Autoimmune haemolytic anaemia [Unknown]
  - Anaemia [Unknown]
  - Atrial fibrillation [Unknown]
  - Rash [Unknown]
  - Diarrhoea [Unknown]
  - Pyrexia [Unknown]
  - Myalgia [Unknown]
  - Bone pain [Unknown]
  - Pruritus [Unknown]
